FAERS Safety Report 15451448 (Version 1)
Quarter: 2018Q3

REPORT INFORMATION
  Report Type: Spontaneous
  Country: US (occurrence: US)
  Receive Date: 20180927
  Receipt Date: 20180927
  Transmission Date: 20181010
  Serious: Yes (Hospitalization, Disabling)
  Sender: FDA-Public Use
  Company Number: None

PATIENT
  Age: 29 Year
  Sex: Male
  Weight: 57 kg

DRUGS (1)
  1. CYTARABINE. [Suspect]
     Active Substance: CYTARABINE

REACTIONS (12)
  - Muscle spasms [None]
  - Paraesthesia [None]
  - Therapy change [None]
  - Neuropathy peripheral [None]
  - Eyelid ptosis [None]
  - Dysarthria [None]
  - Asthenia [None]
  - Grip strength decreased [None]
  - Hypoaesthesia [None]
  - Pain [None]
  - Facial paralysis [None]
  - Muscular weakness [None]

NARRATIVE: CASE EVENT DATE: 20180601
